FAERS Safety Report 8831950 (Version 1)
Quarter: 2012Q4

REPORT INFORMATION
  Report Type: 
  Country: NL (occurrence: NL)
  Receive Date: 20121009
  Receipt Date: 20121009
  Transmission Date: 20130627
  Serious: Yes (Hospitalization)
  Sender: FDA-Public Use
  Company Number: NL-PFIZER INC-2012246773

PATIENT
  Age: 59 Year
  Sex: Male

DRUGS (6)
  1. SULFASALAZINE [Suspect]
     Indication: MUSCULOSKELETAL PAIN
     Dosage: 500 mg, 3x/day
     Dates: start: 2008, end: 20120920
  2. METHOTREXATE [Suspect]
     Indication: MUSCULOSKELETAL PAIN
     Dosage: UNK
     Dates: start: 2008, end: 20120920
  3. FRAGMIN [Concomitant]
     Dosage: UNK
     Dates: start: 201207
  4. ABATACEPT [Concomitant]
     Dosage: UNK
     Dates: start: 2008, end: 20120801
  5. FOLIC ACID [Concomitant]
     Dosage: 5 mg, 1x/day
     Dates: start: 2008, end: 20120920
  6. PANTOZOL [Concomitant]
     Dosage: 40 mg, 1x/day
     Dates: start: 2008

REACTIONS (1)
  - Lung disorder [Unknown]
